FAERS Safety Report 20717940 (Version 1)
Quarter: 2022Q2

REPORT INFORMATION
  Report Type: Report from Study
  Country: US (occurrence: US)
  Receive Date: 20220418
  Receipt Date: 20220418
  Transmission Date: 20220721
  Serious: Yes (Other)
  Sender: FDA-Public Use
  Company Number: US-CELGENE-USA-20220301194

PATIENT
  Age: 73 Year
  Sex: Male
  Weight: 85.27 kg

DRUGS (11)
  1. REVLIMID [Suspect]
     Active Substance: LENALIDOMIDE
     Indication: Plasma cell myeloma
     Dosage: 15 MILLIGRAM
     Route: 048
     Dates: start: 201902
  2. REVLIMID [Suspect]
     Active Substance: LENALIDOMIDE
     Dosage: 25 MILLIGRAM
     Route: 048
     Dates: start: 201902
  3. REVLIMID [Suspect]
     Active Substance: LENALIDOMIDE
     Dosage: 10 MILLIGRAM
     Route: 048
     Dates: start: 201901
  4. REVLIMID [Suspect]
     Active Substance: LENALIDOMIDE
     Dosage: 25 MILLIGRAM
     Route: 048
     Dates: start: 20220111
  5. PAS CALCIUM [Concomitant]
  6. ELIQUIS [Concomitant]
     Active Substance: APIXABAN
  7. EMPLICITI [Concomitant]
     Active Substance: ELOTUZUMAB
  8. DEXAMETHASONE [Concomitant]
     Active Substance: DEXAMETHASONE
  9. METOPROLOL SUCCINATE [Concomitant]
     Active Substance: METOPROLOL SUCCINATE
  10. LISINOPRILHYDROCHLOROTHIAZIDE RATIOPHARM [Concomitant]
  11. ACYCLOVIR [Concomitant]
     Active Substance: ACYCLOVIR

REACTIONS (2)
  - Neuropathy peripheral [Unknown]
  - Balance disorder [Unknown]
